FAERS Safety Report 8333882-1 (Version None)
Quarter: 2012Q1

REPORT INFORMATION
  Report Type: 
  Country: None (occurrence: None)
  Receive Date: 20120328
  Receipt Date: 20110421
  Transmission Date: 20120608
  Serious: Yes (Other)
  Sender: FDA-Public Use
  Company Number: PHHY2011US24946

PATIENT
  Age: 79 Year
  Sex: Female

DRUGS (9)
  1. STEROIDS NOS (NO INGREDIENTS/SUBSTANCES) [Concomitant]
  2. NORVASC [Suspect]
  3. OMEPRAZOLE [Concomitant]
  4. VALTURNA [Suspect]
     Dosage: ALISKIREN 150 AND VALSARTAN 160 PER DAY, ORAL
     Route: 048
     Dates: start: 20110401
  5. FUROSEMIDE [Concomitant]
  6. BENICAR [Suspect]
  7. LEVATOL [Suspect]
  8. METOPROLOL TARTRATE [Suspect]
  9. HYDROCODONE BITARTRATE [Concomitant]

REACTIONS (8)
  - HEAD DISCOMFORT [None]
  - SWELLING [None]
  - HYPERTENSION [None]
  - RHINORRHOEA [None]
  - ALOPECIA [None]
  - HYPERSENSITIVITY [None]
  - COUGH [None]
  - NASAL CONGESTION [None]
